FAERS Safety Report 26145822 (Version 1)
Quarter: 2025Q4

REPORT INFORMATION
  Report Type: Spontaneous
  Country: US (occurrence: US)
  Receive Date: 20251211
  Receipt Date: 20251211
  Transmission Date: 20260118
  Serious: No
  Sender: SANOFI AVENTIS
  Company Number: US-SA-2025SA368198

PATIENT
  Sex: Male

DRUGS (1)
  1. KEVZARA [Suspect]
     Active Substance: SARILUMAB
     Indication: Mucopolysaccharidosis I
     Dosage: 200 UNK
     Route: 058

REACTIONS (2)
  - Pain [Unknown]
  - Product use in unapproved indication [Unknown]
